FAERS Safety Report 9559615 (Version 2)
Quarter: 2013Q4

REPORT INFORMATION
  Report Type: Spontaneous
  Country: US (occurrence: None)
  Receive Date: 20130925
  Receipt Date: 20131106
  Transmission Date: 20140711
  Serious: Yes (Hospitalization)
  Sender: FDA-Public Use
  Company Number: UTC-038093

PATIENT
  Age: 56 Year
  Sex: Female
  Weight: 70 kg

DRUGS (2)
  1. REMODULIN [Suspect]
     Indication: PULMONARY ARTERIAL HYPERTENSION
     Dosage: 36 UG/KG (0.025 UG/KG, 1 IN 1 MIN), SUBCUTANEOUS
     Route: 058
     Dates: start: 20120329
  2. WARFARIN (UNKNOWN) [Concomitant]

REACTIONS (2)
  - Infusion site abscess [None]
  - Drug administered at inappropriate site [None]
